FAERS Safety Report 14458787 (Version 1)
Quarter: 2018Q1

REPORT INFORMATION
  Report Type: Spontaneous
  Country: US (occurrence: US)
  Receive Date: 20180130
  Receipt Date: 20180130
  Transmission Date: 20180509
  Serious: Yes (Other)
  Sender: FDA-Public Use
  Company Number: US-SA-2018SA020510

PATIENT
  Sex: Female

DRUGS (2)
  1. ALIROCUMAB PREFILLED PEN [Suspect]
     Active Substance: ALIROCUMAB
     Indication: HYPERLIPIDAEMIA
     Dates: start: 201708
  2. PRALUENT [Suspect]
     Active Substance: ALIROCUMAB
     Indication: HYPERLIPIDAEMIA
     Route: 058
     Dates: start: 201708

REACTIONS (19)
  - Seizure [Unknown]
  - Cerebral disorder [Unknown]
  - Dementia [Unknown]
  - Muscular weakness [Unknown]
  - Condition aggravated [Unknown]
  - Depression [Unknown]
  - Nausea [Unknown]
  - Abdominal pain upper [Unknown]
  - Ligament sprain [Unknown]
  - Cataract [Unknown]
  - Nasopharyngitis [Unknown]
  - Pain [Unknown]
  - Gastrooesophageal reflux disease [Unknown]
  - Neuropathy peripheral [Unknown]
  - Diarrhoea [Unknown]
  - Oesophageal disorder [Unknown]
  - Systemic lupus erythematosus [Unknown]
  - Dizziness [Unknown]
  - Spinal disorder [Unknown]

NARRATIVE: CASE EVENT DATE: 2017
